FAERS Safety Report 6421547-2 (Version None)
Quarter: 2009Q4

REPORT INFORMATION
  Report Type: 
  Country: None (occurrence: None)
  Receive Date: 20091030
  Receipt Date: 20091021
  Transmission Date: 20100525
  Serious: Yes (Hospitalization)
  Sender: FDA-Public Use
  Company Number: FR-PFIZER INC-2008099961

PATIENT
  Age: 73 Year

DRUGS (7)
  1. DALACINE [Suspect]
     Indication: OSTEOARTHRITIS
     Route: 048
     Dates: start: 20080919, end: 20081003
  2. AUGMENTIN [Suspect]
     Indication: OSTEOARTHRITIS
     Route: 048
     Dates: start: 20080818, end: 20080918
  3. CIFLOX [Suspect]
     Indication: OSTEOARTHRITIS
     Route: 048
     Dates: start: 20080919, end: 20081003
  4. NEXIUM [Suspect]
     Indication: GASTROOESOPHAGEAL REFLUX DISEASE
     Route: 048
     Dates: start: 20080818, end: 20081008
  5. ALDACTAZINE [Concomitant]
  6. ATENOLOL [Concomitant]
  7. LEVOTHYROXINE SODIUM [Concomitant]

REACTIONS (1)
  - CHOLANGITIS [None]
